FAERS Safety Report 6836810 (Version 4)
Quarter: 2020Q3

REPORT INFORMATION
  Report Type: Report from Study
  Country: CL (occurrence: CL)
  Receive Date: 20081208
  Receipt Date: 20090223
  Transmission Date: 20201105
  Serious: Yes (Other)
  Sender: FDA-Public Use
  Company Number: CL-JNJFOC-20081200069

PATIENT
  Age: 47 Year
  Sex: Female
  Weight: 110 kg

DRUGS (13)
  1. CORTISOL [Concomitant]
     Active Substance: HYDROCORTISONE
     Route: 065
  2. RANITIDINE. [Concomitant]
     Active Substance: RANITIDINE
     Route: 065
  3. METOCLOPRAMIDE. [Concomitant]
     Active Substance: METOCLOPRAMIDE
     Route: 065
  4. THIORIDAZINE HYDROCHLORIDE. [Concomitant]
     Active Substance: THIORIDAZINE HYDROCHLORIDE
     Indication: DEPRESSION
     Route: 065
  5. HEPARIN [Concomitant]
     Active Substance: HEPARIN SODIUM
     Route: 058
  6. SPIRONOLACTONE. [Concomitant]
     Active Substance: SPIRONOLACTONE
     Route: 065
  7. MIDAZOLAM HYDROCHLORIDE. [Suspect]
     Active Substance: MIDAZOLAM HYDROCHLORIDE
     Indication: SEDATION
     Dosage: LAST ADMINISTRATION WAS AT 9AM
     Route: 042
  8. DORIPENEM. [Suspect]
     Active Substance: DORIPENEM
     Route: 041
     Dates: start: 20080726, end: 20080803
  9. DORIPENEM. [Suspect]
     Active Substance: DORIPENEM
     Indication: PNEUMONIA
     Dosage: 6 DOSES
     Route: 041
     Dates: start: 20080726, end: 20080803
  10. LEVOTHYROXINE. [Concomitant]
     Active Substance: LEVOTHYROXINE
     Route: 048
  11. SALBUTAMOL [Concomitant]
     Route: 065
  12. VANCOMYCIN [Concomitant]
     Active Substance: VANCOMYCIN
     Route: 042
  13. CLONAZEPAM. [Suspect]
     Active Substance: CLONAZEPAM
     Indication: DEPRESSION
     Route: 065

REACTIONS (1)
  - Seizure [Recovered/Resolved]

NARRATIVE: CASE EVENT DATE: 20080731
